FAERS Safety Report 5655119-4 (Version None)
Quarter: 2008Q1

REPORT INFORMATION
  Report Type: 
  Country: None (occurrence: None)
  Receive Date: 20080307
  Receipt Date: 20071221
  Transmission Date: 20080703
  Serious: No
  Sender: FDA-Public Use
  Company Number: A0700290A

PATIENT
  Age: 55 Year
  Sex: Female

DRUGS (8)
  1. REQUIP [Suspect]
     Indication: RESTLESS LEGS SYNDROME
     Dosage: .25MG AT NIGHT
     Route: 048
  2. HRT [Concomitant]
  3. PLAQUENIL [Concomitant]
  4. ACTONEL [Concomitant]
  5. ASACOL [Concomitant]
  6. IRON [Concomitant]
  7. CALCIUM [Concomitant]
  8. VITAMIN CAP [Concomitant]

REACTIONS (3)
  - HEADACHE [None]
  - STARVATION [None]
  - WEIGHT INCREASED [None]
